FAERS Safety Report 18570286 (Version 1)
Quarter: 2020Q4

REPORT INFORMATION
  Report Type: Spontaneous
  Country: FR (occurrence: FR)
  Receive Date: 20201202
  Receipt Date: 20201202
  Transmission Date: 20210114
  Serious: Yes (Life-Threatening)
  Sender: FDA-Public Use
  Company Number: FR-TEVA-2020-FR-1854046

PATIENT
  Age: 61 Year
  Sex: Male
  Weight: 83 kg

DRUGS (6)
  1. SPECIAFOLDINE [Concomitant]
     Active Substance: FOLIC ACID
  2. AMLOR [Concomitant]
     Active Substance: AMLODIPINE BESYLATE
  3. FENOFIBRATE. [Concomitant]
     Active Substance: FENOFIBRATE
  4. APROVEL [Concomitant]
     Active Substance: IRBESARTAN
  5. AMOXICILLINE [Suspect]
     Active Substance: AMOXICILLIN
     Indication: INFECTION
     Dosage: 1GTT
     Route: 048
     Dates: start: 20191120, end: 20191120
  6. KARDEGIC [Concomitant]
     Active Substance: ASPIRIN DL-LYSINE

REACTIONS (6)
  - Dyspnoea [Recovered/Resolved]
  - Pruritus [Recovered/Resolved]
  - Anaphylactic reaction [Recovered/Resolved]
  - Drug hypersensitivity [Recovered/Resolved with Sequelae]
  - Macroglossia [Recovered/Resolved]
  - Oedema [Recovered/Resolved]

NARRATIVE: CASE EVENT DATE: 20191120
